FAERS Safety Report 9691109 (Version 1)
Quarter: 2013Q4

REPORT INFORMATION
  Report Type: Report from Study
  Country: US (occurrence: US)
  Receive Date: 20131115
  Receipt Date: 20131115
  Transmission Date: 20140711
  Serious: Yes (Hospitalization, Other)
  Sender: FDA-Public Use
  Company Number: US-ABBVIE-13P-163-1168341-00

PATIENT
  Age: 53 Year
  Sex: Male

DRUGS (10)
  1. HUMIRA [Suspect]
     Indication: CROHN^S DISEASE
     Dates: end: 20121229
  2. HUMIRA [Suspect]
     Dates: start: 20131024
  3. PEPCID [Concomitant]
     Indication: PRODUCT USED FOR UNKNOWN INDICATION
  4. METOPROLOL [Concomitant]
     Indication: PRODUCT USED FOR UNKNOWN INDICATION
  5. LISINOPRIL [Concomitant]
     Indication: PRODUCT USED FOR UNKNOWN INDICATION
     Dosage: EVERY EVENING
  6. 6 MP [Concomitant]
     Indication: PRODUCT USED FOR UNKNOWN INDICATION
  7. LORTAB [Concomitant]
     Indication: PAIN
     Dosage: 10/325MG, 4 TIMES DAILY, AS NEEDED
  8. ALPRAZOLAM [Concomitant]
     Indication: PRODUCT USED FOR UNKNOWN INDICATION
     Dosage: 3 TO 4 TIMES DAILY
  9. NORCO [Concomitant]
     Indication: PAIN
     Dosage: 10/325 MG, 4X A DAY
  10. ISONIAZID [Concomitant]
     Indication: TUBERCULIN TEST POSITIVE
     Dates: start: 201207, end: 201307

REACTIONS (6)
  - Intestinal stenosis [Unknown]
  - Intestinal obstruction [Unknown]
  - Fistula [Not Recovered/Not Resolved]
  - Diarrhoea [Not Recovered/Not Resolved]
  - Device malfunction [Unknown]
  - Injection site erythema [Not Recovered/Not Resolved]
